FAERS Safety Report 23030317 (Version 1)
Quarter: 2023Q4

REPORT INFORMATION
  Report Type: Report from Study
  Country: BR (occurrence: BR)
  Receive Date: 20231005
  Receipt Date: 20231005
  Transmission Date: 20240110
  Serious: Yes (Hospitalization, Other)
  Sender: FDA-Public Use
  Company Number: BR-Merck Healthcare KGaA-9314079

PATIENT
  Age: 73 Year
  Sex: Female

DRUGS (3)
  1. REBIF [Suspect]
     Active Substance: INTERFERON BETA-1A
     Indication: Multiple sclerosis
     Dates: start: 20111116, end: 20210519
  2. INTERFERON BETA-1A [Suspect]
     Active Substance: INTERFERON BETA-1A
     Indication: Multiple sclerosis
     Route: 058
     Dates: start: 20210521
  3. BACLOFEN [Concomitant]
     Active Substance: BACLOFEN
     Indication: Muscle spasms
     Dosage: 2 TABLETS IN THE MORNING, 2 TABLETS IN THE AFTERNOON AND 2 TABLETS IN THE EVENING.

REACTIONS (8)
  - Blood sodium decreased [Not Recovered/Not Resolved]
  - Eschar [Not Recovered/Not Resolved]
  - Decubitus ulcer [Not Recovered/Not Resolved]
  - Wound complication [Not Recovered/Not Resolved]
  - Wound infection [Not Recovered/Not Resolved]
  - Diabetes mellitus [Recovering/Resolving]
  - Bone lesion [Unknown]
  - Bladder catheterisation [Unknown]

NARRATIVE: CASE EVENT DATE: 20220201
